FAERS Safety Report 7032932-2 (Version None)
Quarter: 2010Q4

REPORT INFORMATION
  Report Type: 
  Country: None (occurrence: None)
  Receive Date: 20101004
  Receipt Date: 20100923
  Transmission Date: 20110411
  Serious: Yes (Other)
  Sender: FDA-Public Use
  Company Number: 2010US003922

PATIENT
  Age: 26 Year
  Sex: Female
  Weight: 52 kg

DRUGS (8)
  1. PROGRAF [Suspect]
     Indication: RENAL TRANSPLANT
     Dosage: 2 MG, BID, ORAL; 3 MG, BID, ORAL; 5 MG, BID, ORAL
     Route: 048
     Dates: end: 20091001
  2. PROGRAF [Suspect]
     Indication: RENAL TRANSPLANT
     Dosage: 2 MG, BID, ORAL; 3 MG, BID, ORAL; 5 MG, BID, ORAL
     Route: 048
     Dates: start: 20091001, end: 20091101
  3. PROGRAF [Suspect]
     Indication: RENAL TRANSPLANT
     Dosage: 2 MG, BID, ORAL; 3 MG, BID, ORAL; 5 MG, BID, ORAL
     Route: 048
     Dates: start: 20091101
  4. AZATHIOPRINE [Concomitant]
  5. PREDNISONE TAB [Concomitant]
  6. PEPCID (CALCIUM CARBONATE) [Concomitant]
  7. IRON (IRON) [Concomitant]
  8. PRENATAL VITAMINS (MINERALS NOS) [Concomitant]

REACTIONS (4)
  - DRUG EXPOSURE DURING PREGNANCY [None]
  - PREGNANCY [None]
  - PREMATURE RUPTURE OF MEMBRANES [None]
  - STILLBIRTH [None]
